FAERS Safety Report 6180429-4 (Version None)
Quarter: 2009Q2

REPORT INFORMATION
  Report Type: 
  Country: None (occurrence: None)
  Receive Date: 20090506
  Receipt Date: 20090429
  Transmission Date: 20091009
  Serious: Yes (Other)
  Sender: FDA-Public Use
  Company Number: US-ASTRAZENECA-2009UW10903

PATIENT
  Sex: Female
  Weight: 59 kg

DRUGS (5)
  1. SYMBICORT [Suspect]
     Indication: ASTHMA
     Dosage: 2 PUFFS IN THE MORNING
     Route: 055
  2. PULMICORT FLEXHALER [Concomitant]
     Indication: ASTHMA
     Dosage: 2 PUFFS IN THE EVENING
     Route: 055
  3. SIMVASTATIN [Concomitant]
  4. BENADRYL [Concomitant]
  5. SINGULAIR [Concomitant]

REACTIONS (2)
  - DIABETES MELLITUS [None]
  - SLEEP DISORDER [None]
